FAERS Safety Report 11256898 (Version 1)
Quarter: 2015Q3

REPORT INFORMATION
  Report Type: Spontaneous
  Country: US (occurrence: US)
  Receive Date: 20150709
  Receipt Date: 20150709
  Transmission Date: 20151125
  Serious: No
  Sender: FDA-Public Use
  Company Number: US-PURDUE-USA-2014-0119781

PATIENT
  Age: 67 Year
  Sex: Female

DRUGS (3)
  1. BUTRANS [Suspect]
     Active Substance: BUPRENORPHINE
     Indication: PAIN
     Dosage: 10 MCG/HR, WEEKLY
     Route: 062
     Dates: start: 20141129
  2. VISTARIL [Suspect]
     Active Substance: HYDROXYZINE PAMOATE
     Indication: PRURITUS
     Dosage: 25 MG, TID
     Route: 048
     Dates: start: 20141211
  3. BUTRANS [Suspect]
     Active Substance: BUPRENORPHINE
     Dosage: UNK
     Route: 062
     Dates: start: 2011

REACTIONS (7)
  - Application site vesicles [Unknown]
  - Application site pruritus [Unknown]
  - Application site discharge [Unknown]
  - Pruritus generalised [Unknown]
  - Product adhesion issue [Unknown]
  - Application site ulcer [Unknown]
  - Application site erythema [Unknown]

NARRATIVE: CASE EVENT DATE: 20141129
